FAERS Safety Report 20626081 (Version 1)
Quarter: 2022Q1

REPORT INFORMATION
  Report Type: Spontaneous
  Country: US (occurrence: US)
  Receive Date: 20220323
  Receipt Date: 20220323
  Transmission Date: 20220423
  Serious: No
  Sender: FDA-Public Use
  Company Number: US-JNJFOC-20220335809

PATIENT
  Age: 3 Decade
  Sex: Female

DRUGS (5)
  1. INVEGA [Suspect]
     Active Substance: PALIPERIDONE
     Indication: Product used for unknown indication
     Route: 048
  2. INVEGA [Suspect]
     Active Substance: PALIPERIDONE
     Route: 048
  3. HALDOL [Concomitant]
     Active Substance: HALOPERIDOL
  4. ATIVAN [Concomitant]
     Active Substance: LORAZEPAM
  5. THORAZINE [Concomitant]
     Active Substance: CHLORPROMAZINE

REACTIONS (1)
  - Swelling face [Recovered/Resolved]
